FAERS Safety Report 22186615 (Version 2)
Quarter: 2023Q2

REPORT INFORMATION
  Report Type: Spontaneous
  Country: US (occurrence: US)
  Receive Date: 20230407
  Receipt Date: 20230515
  Transmission Date: 20230722
  Serious: No
  Sender: FDA-Public Use
  Company Number: US-VIIV HEALTHCARE LIMITED-US2023AMR047873

PATIENT
  Age: 40 Year
  Sex: Male
  Weight: 103 kg

DRUGS (5)
  1. CABOTEGRAVIR [Suspect]
     Active Substance: CABOTEGRAVIR
     Indication: Prophylaxis against HIV infection
     Dosage: 600 UNK, MO, EVERY MONTH FOR 2 MONTHS
     Route: 030
     Dates: start: 20221025, end: 20230214
  2. CABOTEGRAVIR [Suspect]
     Active Substance: CABOTEGRAVIR
     Dosage: 600 MG, Q2M
     Route: 030
     Dates: start: 20230223, end: 20230329
  3. CABOTEGRAVIR [Suspect]
     Active Substance: CABOTEGRAVIR
  4. VOCABRIA [Concomitant]
     Active Substance: CABOTEGRAVIR SODIUM
     Indication: Product used for unknown indication
     Dosage: UNK
  5. EDURANT [Concomitant]
     Active Substance: RILPIVIRINE HYDROCHLORIDE
     Indication: Product used for unknown indication
     Dosage: UNK

REACTIONS (4)
  - Viral load increased [Unknown]
  - Sleep disorder [Recovered/Resolved]
  - Depression [Recovering/Resolving]
  - Abnormal dreams [Unknown]

NARRATIVE: CASE EVENT DATE: 20230328
